FAERS Safety Report 8078364-X (Version None)
Quarter: 2012Q1

REPORT INFORMATION
  Report Type: 
  Country: None (occurrence: None)
  Receive Date: 20120123
  Receipt Date: 20120109
  Transmission Date: 20120608
  Serious: Yes (Life-Threatening, Hospitalization, Other)
  Sender: FDA-Public Use
  Company Number: 2012MA000546

PATIENT
  Age: 55 Year
  Sex: Female

DRUGS (1)
  1. FEVERALL [Suspect]
     Indication: PAIN

REACTIONS (5)
  - ACUTE HEPATIC FAILURE [None]
  - QUALITY OF LIFE DECREASED [None]
  - PAIN [None]
  - OVERDOSE [None]
  - DEPRESSED MOOD [None]
